FAERS Safety Report 4846127-1 (Version None)
Quarter: 2005Q4

REPORT INFORMATION
  Report Type: 
  Country: None (occurrence: None)
  Receive Date: 20051130
  Receipt Date: 20051122
  Transmission Date: 20060501
  Serious: Yes (Other)
  Sender: FDA-Public Use
  Company Number: 24004

PATIENT
  Sex: Male

DRUGS (4)
  1. NIASPAN [Suspect]
     Indication: LOW DENSITY LIPOPROTEIN INCREASED
     Dosage: 500 MG QAM PO
     Route: 048
     Dates: start: 20050901, end: 20051019
  2. ALTACE [Concomitant]
  3. CADUET [Concomitant]
  4. LEXAPRO [Concomitant]

REACTIONS (10)
  - CONVULSION [None]
  - DIZZINESS [None]
  - FEELING ABNORMAL [None]
  - FLUSHING [None]
  - FOOD INTERACTION [None]
  - HYPOTENSION [None]
  - LOSS OF CONSCIOUSNESS [None]
  - PRURITUS [None]
  - SYNCOPE [None]
  - URINARY INCONTINENCE [None]
